FAERS Safety Report 22001873 (Version 3)
Quarter: 2023Q2

REPORT INFORMATION
  Report Type: Spontaneous
  Country: JP (occurrence: JP)
  Receive Date: 20230216
  Receipt Date: 20230518
  Transmission Date: 20230721
  Serious: Yes (Death)
  Sender: FDA-Public Use
  Company Number: JP-002147023-NVSJ2023JP003214

PATIENT
  Age: 79 Year
  Sex: Male
  Weight: 74.6 kg

DRUGS (11)
  1. GLIVEC [Suspect]
     Active Substance: IMATINIB MESYLATE
     Indication: Gastrointestinal stromal tumour
     Dosage: 400 MG
     Route: 048
     Dates: start: 20220810, end: 20221113
  2. ASPIRIN [Concomitant]
     Active Substance: ASPIRIN
     Indication: Product used for unknown indication
     Dosage: 100 MG
     Route: 048
     Dates: end: 20221114
  3. FUROSEMIDE [Concomitant]
     Active Substance: FUROSEMIDE
     Indication: Product used for unknown indication
     Dosage: 40 MG
     Route: 048
  4. ELDECALCITOL [Concomitant]
     Active Substance: ELDECALCITOL
     Indication: Product used for unknown indication
     Dosage: 0.75 UG
     Route: 048
  5. ESOMEPRAZOLE MAGNESIUM [Concomitant]
     Active Substance: ESOMEPRAZOLE MAGNESIUM
     Indication: Product used for unknown indication
     Dosage: 20 MG
     Route: 048
  6. SODIUM FERROUS CITRATE [Concomitant]
     Active Substance: SODIUM FERROUS CITRATE
     Indication: Product used for unknown indication
     Dosage: 50 MG
     Route: 048
  7. AMLODIPINE [Concomitant]
     Active Substance: AMLODIPINE BESYLATE
     Indication: Product used for unknown indication
     Dosage: 5 MG
     Route: 048
  8. REBAMIPIDE [Concomitant]
     Active Substance: REBAMIPIDE
     Indication: Product used for unknown indication
     Dosage: 100 MG
     Route: 048
  9. TAMSULOSIN [Concomitant]
     Active Substance: TAMSULOSIN
     Indication: Product used for unknown indication
     Dosage: 0.2 MG
     Route: 048
  10. PROPIVERINE [Concomitant]
     Active Substance: PROPIVERINE
     Indication: Product used for unknown indication
     Dosage: 20 MG
     Route: 048
  11. ALESION [Concomitant]
     Active Substance: EPINASTINE HYDROCHLORIDE
     Indication: Product used for unknown indication
     Dosage: UNK

REACTIONS (1)
  - Pulmonary toxicity [Fatal]

NARRATIVE: CASE EVENT DATE: 20221113
